FAERS Safety Report 7487714-4 (Version None)
Quarter: 2011Q2

REPORT INFORMATION
  Report Type: 
  Country: None (occurrence: None)
  Receive Date: 20110518
  Receipt Date: 20110504
  Transmission Date: 20111010
  Serious: Yes (Hospitalization, Other)
  Sender: FDA-Public Use
  Company Number: PHHY2011DE33644

PATIENT
  Sex: Male
  Weight: 115 kg

DRUGS (12)
  1. AZOR [Concomitant]
     Dosage: 1 DF, UNK
     Route: 048
     Dates: start: 20090318, end: 20110129
  2. TORSEMIDE [Concomitant]
     Dosage: 10 MG, PER DAY
     Route: 048
     Dates: start: 20100324
  3. BETA BLOCKING AGENTS [Concomitant]
  4. OTHER CHOLESTEROL LOWERING DRUG [Concomitant]
  5. ALISKIREN [Suspect]
     Indication: HYPERTENSION
     Dosage: 150 MG (1 DF), QD
     Dates: start: 20081030, end: 20090301
  6. CALCIUM ANTAGONIST [Concomitant]
     Dosage: UNK
     Dates: end: 20090301
  7. ANTIHYPERTENSIVE DRUGS [Concomitant]
     Dosage: UNK
     Dates: end: 20090301
  8. ACTOPLUS MET [Concomitant]
     Dosage: 1 DF, BID
     Route: 048
     Dates: start: 20090318, end: 20110129
  9. EZETIMIBE [Concomitant]
     Dosage: 1 DF, UNK
     Route: 048
     Dates: start: 20090318, end: 20110129
  10. TROMCARDIN [Concomitant]
     Dosage: UNK
     Dates: start: 20090318, end: 20090408
  11. ENALAPRIL MALEATE [Concomitant]
     Dosage: 5 MG, PER DAY
     Route: 048
     Dates: start: 20100324
  12. ASPIRIN [Concomitant]
     Dosage: 100 MG, PER DAY
     Route: 048
     Dates: start: 20060316

REACTIONS (3)
  - DYSPNOEA [None]
  - HYPERTENSIVE CRISIS [None]
  - LEFT VENTRICULAR HYPERTROPHY [None]
